FAERS Safety Report 7006421-5 (Version None)
Quarter: 2010Q3

REPORT INFORMATION
  Report Type: 
  Country: None (occurrence: None)
  Receive Date: 20100910
  Receipt Date: 20100903
  Transmission Date: 20110219
  Serious: Yes (Hospitalization, Other)
  Sender: FDA-Public Use
  Company Number: 2010SP047654

PATIENT
  Age: 52 Year
  Sex: Male

DRUGS (4)
  1. PEGINTERFERON ALFA-2B [Suspect]
     Indication: HEPATITIS C
     Dosage: SC
     Route: 058
     Dates: start: 20100301
  2. RIBAVIRIN [Suspect]
     Indication: HEPATITIS C
     Dates: start: 20080101, end: 20080101
  3. RIBAVIRIN [Suspect]
     Indication: HEPATITIS C
     Dates: start: 20100301
  4. PEGASYS [Suspect]
     Indication: HEPATITIS C
     Dates: start: 20080101, end: 20080101

REACTIONS (3)
  - INFECTION [None]
  - PHARYNGEAL ABSCESS [None]
  - SENSATION OF FOREIGN BODY [None]
